FAERS Safety Report 17221251 (Version 13)
Quarter: 2023Q4

REPORT INFORMATION
  Report Type: Spontaneous
  Country: CA (occurrence: CA)
  Receive Date: 20191231
  Receipt Date: 20231020
  Transmission Date: 20240110
  Serious: Yes (Other)
  Sender: FDA-Public Use
  Company Number: CA-BAUSCH-BL-2019-066183

PATIENT
  Age: 53 Year
  Sex: Female

DRUGS (81)
  1. MESALAMINE [Suspect]
     Active Substance: MESALAMINE
     Indication: Product used for unknown indication
     Dosage: NOT SPECIFIED
     Route: 065
  2. BUDESONIDE [Suspect]
     Active Substance: BUDESONIDE
     Indication: Product used for unknown indication
     Route: 048
  3. VENLAFAXINE HYDROCHLORIDE [Suspect]
     Active Substance: VENLAFAXINE HYDROCHLORIDE
     Indication: Product used for unknown indication
     Route: 065
  4. VENLAFAXINE HYDROCHLORIDE [Suspect]
     Active Substance: VENLAFAXINE HYDROCHLORIDE
     Route: 065
  5. ALBUTEROL [Suspect]
     Active Substance: ALBUTEROL
     Indication: Product used for unknown indication
     Dosage: SALBUTAMOL
     Route: 065
  6. ALBUTEROL [Suspect]
     Active Substance: ALBUTEROL
     Dosage: SALBUTAMOL SULFATE
     Route: 065
  7. BOTULINUM TOXIN TYPE A [Suspect]
     Active Substance: BOTULINUM TOXIN TYPE A
     Indication: Migraine
     Dosage: NOT SPECIFIED
     Route: 058
  8. BOTULINUM TOXIN TYPE A [Suspect]
     Active Substance: BOTULINUM TOXIN TYPE A
     Dosage: POWDER FOR SOLUTION
     Route: 058
  9. BOTULINUM TOXIN TYPE A [Suspect]
     Active Substance: BOTULINUM TOXIN TYPE A
     Dosage: NOT SPECIFIED
     Route: 058
  10. BOTULINUM TOXIN TYPE A [Suspect]
     Active Substance: BOTULINUM TOXIN TYPE A
     Dosage: POWDER FOR SOLUTION
     Route: 058
  11. BOTULINUM TOXIN TYPE A [Suspect]
     Active Substance: BOTULINUM TOXIN TYPE A
     Dosage: POWDER FOR SOLUTION
     Route: 058
  12. BOTULINUM TOXIN TYPE A [Suspect]
     Active Substance: BOTULINUM TOXIN TYPE A
     Route: 058
  13. BOTULINUM TOXIN TYPE A [Suspect]
     Active Substance: BOTULINUM TOXIN TYPE A
     Dosage: POWDER FOR SOLUTION
     Route: 058
  14. BUDESONIDE [Suspect]
     Active Substance: BUDESONIDE
     Indication: Product used for unknown indication
     Route: 048
  15. ERGOCALCIFEROL [Suspect]
     Active Substance: ERGOCALCIFEROL
     Indication: Product used for unknown indication
     Route: 065
  16. ERGOCALCIFEROL [Suspect]
     Active Substance: ERGOCALCIFEROL
     Route: 065
  17. ERGOCALCIFEROL [Suspect]
     Active Substance: ERGOCALCIFEROL
     Route: 065
  18. ERGOCALCIFEROL [Suspect]
     Active Substance: ERGOCALCIFEROL
     Route: 065
  19. ROSUVASTATIN CALCIUM [Suspect]
     Active Substance: ROSUVASTATIN CALCIUM
     Indication: Product used for unknown indication
     Route: 065
  20. ROSUVASTATIN CALCIUM [Suspect]
     Active Substance: ROSUVASTATIN CALCIUM
     Route: 065
  21. ROSUVASTATIN CALCIUM [Suspect]
     Active Substance: ROSUVASTATIN CALCIUM
     Route: 048
  22. ROSUVASTATIN CALCIUM [Suspect]
     Active Substance: ROSUVASTATIN CALCIUM
     Route: 048
  23. TELMISARTAN [Suspect]
     Active Substance: TELMISARTAN
     Indication: Product used for unknown indication
     Route: 065
  24. TELMISARTAN [Suspect]
     Active Substance: TELMISARTAN
     Route: 065
  25. TELMISARTAN [Suspect]
     Active Substance: TELMISARTAN
     Route: 048
  26. TELMISARTAN [Suspect]
     Active Substance: TELMISARTAN
     Route: 048
  27. TELMISARTAN [Suspect]
     Active Substance: TELMISARTAN
     Route: 048
  28. ACEBUTOLOL [Suspect]
     Active Substance: ACEBUTOLOL
     Indication: Product used for unknown indication
     Dosage: ACEBUTOLOL
     Route: 065
  29. ACEBUTOLOL [Suspect]
     Active Substance: ACEBUTOLOL
     Dosage: ACEBUTOLOL HYDROCHLORIDE
     Route: 065
  30. ACEBUTOLOL [Suspect]
     Active Substance: ACEBUTOLOL
     Dosage: ACEBUTOLOL HYDROCHLORIDE
     Route: 065
  31. ACEBUTOLOL [Suspect]
     Active Substance: ACEBUTOLOL
     Dosage: ACEBUTOLOL HYDROCHLORIDE
     Route: 065
  32. AMLODIPINE [Suspect]
     Active Substance: AMLODIPINE BESYLATE
     Indication: Product used for unknown indication
     Dosage: AMLODIPINE
     Route: 065
  33. AMLODIPINE [Suspect]
     Active Substance: AMLODIPINE BESYLATE
     Dosage: AMLODIPINE BESILATE
     Route: 065
  34. AMLODIPINE [Suspect]
     Active Substance: AMLODIPINE BESYLATE
     Dosage: AMLODIPINE BESILATE
     Route: 065
  35. AMLODIPINE [Suspect]
     Active Substance: AMLODIPINE BESYLATE
     Dosage: AMLODIPINE BESILATE / AMLODIPINE BESYLATE
     Route: 065
  36. AMLODIPINE [Suspect]
     Active Substance: AMLODIPINE BESYLATE
     Dosage: AMLODIPINE BESYLATE
     Route: 065
  37. DEXILANT [Suspect]
     Active Substance: DEXLANSOPRAZOLE
     Indication: Product used for unknown indication
     Dosage: CAPSULE DELAYED RELEASE
     Route: 065
  38. DEXILANT [Suspect]
     Active Substance: DEXLANSOPRAZOLE
     Route: 065
  39. DEXILANT [Suspect]
     Active Substance: DEXLANSOPRAZOLE
     Dosage: CAPSULE, DELAYED RELEASE
     Route: 065
  40. DEXILANT [Suspect]
     Active Substance: DEXLANSOPRAZOLE
     Dosage: CAPSULE, DELAYED RELEASE
     Route: 065
  41. DEXILANT [Suspect]
     Active Substance: DEXLANSOPRAZOLE
     Route: 065
  42. ALLANTOIN\AMINACRINE HYDROCHLORIDE\DIENESTROL\SULFANILAMIDE [Suspect]
     Active Substance: ALLANTOIN\AMINACRINE HYDROCHLORIDE\DIENESTROL\SULFANILAMIDE
     Indication: Product used for unknown indication
     Route: 065
  43. ALLANTOIN\AMINACRINE HYDROCHLORIDE\DIENESTROL\SULFANILAMIDE [Suspect]
     Active Substance: ALLANTOIN\AMINACRINE HYDROCHLORIDE\DIENESTROL\SULFANILAMIDE
     Route: 065
  44. ALLANTOIN\AMINACRINE HYDROCHLORIDE\DIENESTROL\SULFANILAMIDE [Suspect]
     Active Substance: ALLANTOIN\AMINACRINE HYDROCHLORIDE\DIENESTROL\SULFANILAMIDE
     Route: 065
  45. ALLANTOIN\AMINACRINE HYDROCHLORIDE\DIENESTROL\SULFANILAMIDE [Suspect]
     Active Substance: ALLANTOIN\AMINACRINE HYDROCHLORIDE\DIENESTROL\SULFANILAMIDE
     Route: 065
  46. ALLANTOIN\AMINACRINE HYDROCHLORIDE\DIENESTROL\SULFANILAMIDE [Suspect]
     Active Substance: ALLANTOIN\AMINACRINE HYDROCHLORIDE\DIENESTROL\SULFANILAMIDE
     Dosage: NOT SPECIFIED
     Route: 065
  47. HUMIRA [Suspect]
     Active Substance: ADALIMUMAB
     Indication: Crohn^s disease
     Dosage: SOLUTION SUBCUTANEOUS
     Route: 058
  48. HUMIRA [Suspect]
     Active Substance: ADALIMUMAB
     Route: 058
  49. FENTANYL [Suspect]
     Active Substance: FENTANYL\FENTANYL CITRATE
     Indication: Product used for unknown indication
     Route: 065
  50. FENTANYL [Suspect]
     Active Substance: FENTANYL\FENTANYL CITRATE
     Route: 065
  51. FENTANYL [Suspect]
     Active Substance: FENTANYL\FENTANYL CITRATE
     Route: 065
  52. INFLIXIMAB [Suspect]
     Active Substance: INFLIXIMAB
     Indication: Crohn^s disease
     Dosage: INFLIXIMAB
     Route: 065
  53. INFLIXIMAB [Suspect]
     Active Substance: INFLIXIMAB
     Dosage: INFLIXIMAB
     Route: 065
  54. INFLIXIMAB [Suspect]
     Active Substance: INFLIXIMAB
     Dosage: INFLIXIMAB
     Route: 065
  55. INFLIXIMAB [Suspect]
     Active Substance: INFLIXIMAB
     Dosage: INFLIXIMAB
     Route: 065
  56. INFLIXIMAB [Suspect]
     Active Substance: INFLIXIMAB
     Dosage: INFLIXIMAB BIOSIMILAR 1
     Route: 065
  57. METHOTREXATE [Suspect]
     Active Substance: METHOTREXATE
     Indication: Product used for unknown indication
     Dosage: METHOTREXATE
     Route: 065
  58. METHOTREXATE [Suspect]
     Active Substance: METHOTREXATE
     Dosage: METHOTREXATE SODIUM
     Route: 065
  59. MESALAMINE [Suspect]
     Active Substance: MESALAMINE
     Indication: Product used for unknown indication
     Dosage: DELAYED AND EXTENDED RELEASE TABLET
     Route: 065
  60. MESALAMINE [Suspect]
     Active Substance: MESALAMINE
     Dosage: DELAYED AND EXTENDED RELEASE TABLET
     Route: 065
  61. PREDNISONE [Suspect]
     Active Substance: PREDNISONE
     Indication: Product used for unknown indication
     Route: 065
  62. PREDNISONE [Suspect]
     Active Substance: PREDNISONE
     Route: 048
  63. PREDNISONE [Suspect]
     Active Substance: PREDNISONE
     Route: 065
  64. PREDNISONE [Suspect]
     Active Substance: PREDNISONE
     Route: 048
  65. PREDNISONE [Suspect]
     Active Substance: PREDNISONE
     Route: 048
  66. PREDNISONE [Suspect]
     Active Substance: PREDNISONE
     Route: 065
  67. PREDNISONE [Suspect]
     Active Substance: PREDNISONE
     Route: 048
  68. SUMATRIPTAN [Suspect]
     Active Substance: SUMATRIPTAN
     Indication: Product used for unknown indication
     Dosage: SUMATRIPTAN
     Route: 065
  69. SUMATRIPTAN [Suspect]
     Active Substance: SUMATRIPTAN
     Dosage: SUMATRIPTAN SUCCINATE?INTRA-NASAL
     Route: 045
  70. SUMATRIPTAN [Suspect]
     Active Substance: SUMATRIPTAN
     Dosage: SUMATRIPTAN SUCCINATE
     Route: 065
  71. SUMATRIPTAN [Suspect]
     Active Substance: SUMATRIPTAN
     Dosage: SUMATRIPTAN SUCCINATE
     Route: 065
  72. DEXLANSOPRAZOLE [Suspect]
     Active Substance: DEXLANSOPRAZOLE
     Indication: Product used for unknown indication
     Route: 065
  73. DEXLANSOPRAZOLE [Suspect]
     Active Substance: DEXLANSOPRAZOLE
     Dosage: CAPSULE, DELAYED RELEASE
     Route: 065
  74. DIENESTROL [Suspect]
     Active Substance: DIENESTROL
     Indication: Product used for unknown indication
     Route: 065
  75. ENTOCORT [Suspect]
     Active Substance: BUDESONIDE
     Indication: Product used for unknown indication
     Route: 048
  76. BUPROPION [Suspect]
     Active Substance: BUPROPION
     Indication: Product used for unknown indication
     Route: 065
  77. BUPROPION [Suspect]
     Active Substance: BUPROPION
     Route: 065
  78. BUPROPION [Suspect]
     Active Substance: BUPROPION
     Route: 065
  79. MESALAMINE [Suspect]
     Active Substance: MESALAMINE
     Indication: Product used for unknown indication
     Route: 065
  80. ADALIMUMAB [Suspect]
     Active Substance: ADALIMUMAB\ISOPROPYL ALCOHOL
     Indication: Crohn^s disease
     Dosage: SOLUTION SUBCUTANEOUS
     Route: 058
  81. PENTASA [Suspect]
     Active Substance: MESALAMINE
     Indication: Product used for unknown indication
     Route: 065

REACTIONS (12)
  - Drug specific antibody present [Unknown]
  - Drug intolerance [Unknown]
  - Chronic kidney disease [Unknown]
  - Endometriosis [Unknown]
  - Asthma [Unknown]
  - Arthritis [Unknown]
  - Migraine [Unknown]
  - Depression [Unknown]
  - Hypertension [Unknown]
  - Psoriasis [Unknown]
  - Drug ineffective [Unknown]
  - Incorrect route of product administration [Unknown]
